FAERS Safety Report 5721719-6 (Version None)
Quarter: 2008Q2

REPORT INFORMATION
  Report Type: 
  Country: None (occurrence: None)
  Receive Date: 20080429
  Receipt Date: 20070406
  Transmission Date: 20081010
  Serious: No
  Sender: FDA-Public Use
  Company Number: US-ASTRAZENECA-2007UW06885

PATIENT
  Age: 76 Year
  Sex: Female
  Weight: 59 kg

DRUGS (2)
  1. NEXIUM [Suspect]
     Indication: GASTROOESOPHAGEAL REFLUX DISEASE
     Route: 048
  2. ASPIRIN [Concomitant]

REACTIONS (5)
  - DIZZINESS [None]
  - DYSGEUSIA [None]
  - GAIT DISTURBANCE [None]
  - ILL-DEFINED DISORDER [None]
  - SENSATION OF FOREIGN BODY [None]
